FAERS Safety Report 6095624-2 (Version None)
Quarter: 2009Q1

REPORT INFORMATION
  Report Type: 
  Country: None (occurrence: None)
  Receive Date: 20090227
  Receipt Date: 20080508
  Transmission Date: 20090719
  Serious: No
  Sender: FDA-Public Use
  Company Number: A0726907A

PATIENT
  Age: 52 Year
  Sex: Female

DRUGS (3)
  1. LAMICTAL [Suspect]
     Indication: BIPOLAR DISORDER
     Dosage: 200MG TWICE PER DAY
     Route: 048
  2. COMPAZINE [Concomitant]
  3. TRILEPTAL [Concomitant]

REACTIONS (4)
  - ARTHRALGIA [None]
  - EAR PAIN [None]
  - HYPERHIDROSIS [None]
  - NIGHTMARE [None]
